FAERS Safety Report 25488095 (Version 1)
Quarter: 2025Q2

REPORT INFORMATION
  Report Type: Spontaneous
  Country: CA (occurrence: CA)
  Receive Date: 20250627
  Receipt Date: 20250627
  Transmission Date: 20250716
  Serious: Yes (Death)
  Sender: CELLTRION
  Company Number: CA-AMGEN-CANSP2025119024

PATIENT

DRUGS (199)
  1. INFLIXIMAB [Suspect]
     Active Substance: INFLIXIMAB
     Route: 065
  2. INFLIXIMAB [Suspect]
     Active Substance: INFLIXIMAB
     Route: 040
  3. ENBREL [Suspect]
     Active Substance: ETANERCEPT
     Route: 058
  4. ENBREL [Suspect]
     Active Substance: ETANERCEPT
     Dosage: 50 MILLIGRAM, QWK (ONE EVERY ONE WEEKS)
     Route: 058
  5. ENBREL [Suspect]
     Active Substance: ETANERCEPT
     Route: 058
  6. ENBREL [Suspect]
     Active Substance: ETANERCEPT
     Dosage: 20 MILLIGRAM, QWK (ONE EVERY ONE WEEKS)
     Route: 058
  7. ADALIMUMAB [Suspect]
     Active Substance: ADALIMUMAB
     Route: 016
  8. ADALIMUMAB [Suspect]
     Active Substance: ADALIMUMAB
     Route: 040
  9. ADALIMUMAB [Suspect]
     Active Substance: ADALIMUMAB
     Route: 016
  10. DICLOFENAC SODIUM [Suspect]
     Active Substance: DICLOFENAC SODIUM
     Route: 065
  11. DICLOFENAC SODIUM [Suspect]
     Active Substance: DICLOFENAC SODIUM
     Route: 058
  12. DICLOFENAC SODIUM [Suspect]
     Active Substance: DICLOFENAC SODIUM
     Route: 065
  13. DICLOFENAC SODIUM [Suspect]
     Active Substance: DICLOFENAC SODIUM
     Route: 065
  14. DICLOFENAC SODIUM [Suspect]
     Active Substance: DICLOFENAC SODIUM
     Route: 065
  15. DICLOFENAC SODIUM [Suspect]
     Active Substance: DICLOFENAC SODIUM
     Route: 065
  16. DICLOFENAC SODIUM [Suspect]
     Active Substance: DICLOFENAC SODIUM
     Route: 065
  17. DICLOFENAC SODIUM [Suspect]
     Active Substance: DICLOFENAC SODIUM
     Route: 065
  18. HYDROCORTISONE SODIUM SUCCINATE [Suspect]
     Active Substance: HYDROCORTISONE SODIUM SUCCINATE
     Route: 049
  19. HYDROCORTISONE SODIUM SUCCINATE [Suspect]
     Active Substance: HYDROCORTISONE SODIUM SUCCINATE
     Route: 048
  20. METHOTREXATE [Suspect]
     Active Substance: METHOTREXATE
     Route: 048
  21. METHOTREXATE [Suspect]
     Active Substance: METHOTREXATE
     Route: 065
  22. METHOTREXATE [Suspect]
     Active Substance: METHOTREXATE
     Route: 065
  23. METHOTREXATE [Suspect]
     Active Substance: METHOTREXATE
     Route: 048
  24. METHOTREXATE [Suspect]
     Active Substance: METHOTREXATE
     Route: 065
  25. METHOTREXATE [Suspect]
     Active Substance: METHOTREXATE
     Route: 016
  26. METHOTREXATE [Suspect]
     Active Substance: METHOTREXATE
     Route: 013
  27. METHOTREXATE [Suspect]
     Active Substance: METHOTREXATE
     Route: 013
  28. METHOTREXATE [Suspect]
     Active Substance: METHOTREXATE
     Route: 048
  29. METHOTREXATE [Suspect]
     Active Substance: METHOTREXATE
     Route: 048
  30. METHOTREXATE [Suspect]
     Active Substance: METHOTREXATE
     Route: 058
  31. METHOTREXATE [Suspect]
     Active Substance: METHOTREXATE
     Route: 048
  32. METHOTREXATE [Suspect]
     Active Substance: METHOTREXATE
     Route: 048
  33. METHOTREXATE [Suspect]
     Active Substance: METHOTREXATE
     Route: 058
  34. METHOTREXATE [Suspect]
     Active Substance: METHOTREXATE
     Route: 058
  35. METHYLPREDNISOLONE SODIUM SUCCINATE [Suspect]
     Active Substance: METHYLPREDNISOLONE SODIUM SUCCINATE
     Route: 048
  36. SULFASALAZINE [Suspect]
     Active Substance: SULFASALAZINE
     Route: 058
  37. SULFASALAZINE [Suspect]
     Active Substance: SULFASALAZINE
     Route: 058
  38. SULFASALAZINE [Suspect]
     Active Substance: SULFASALAZINE
     Route: 058
  39. SULFASALAZINE [Suspect]
     Active Substance: SULFASALAZINE
     Route: 058
  40. SULFASALAZINE [Suspect]
     Active Substance: SULFASALAZINE
     Route: 058
  41. SULFASALAZINE [Suspect]
     Active Substance: SULFASALAZINE
     Route: 058
  42. SULFASALAZINE [Suspect]
     Active Substance: SULFASALAZINE
     Route: 048
  43. TOFACITINIB CITRATE [Suspect]
     Active Substance: TOFACITINIB CITRATE
     Route: 065
  44. XELJANZ [Suspect]
     Active Substance: TOFACITINIB CITRATE
     Route: 048
  45. XELJANZ [Suspect]
     Active Substance: TOFACITINIB CITRATE
     Route: 065
  46. APREMILAST [Suspect]
     Active Substance: APREMILAST
     Route: 065
  47. ACETAMINOPHEN [Suspect]
     Active Substance: ACETAMINOPHEN
     Route: 065
  48. ACETAMINOPHEN [Suspect]
     Active Substance: ACETAMINOPHEN
     Route: 065
  49. OTEZLA [Suspect]
     Active Substance: APREMILAST
     Route: 065
  50. OTEZLA [Suspect]
     Active Substance: APREMILAST
     Route: 048
  51. OTEZLA [Suspect]
     Active Substance: APREMILAST
     Route: 065
  52. OTEZLA [Suspect]
     Active Substance: APREMILAST
     Route: 048
  53. OTEZLA [Suspect]
     Active Substance: APREMILAST
     Route: 065
  54. PREDNISONE [Suspect]
     Active Substance: PREDNISONE
     Route: 048
  55. PREDNISONE [Suspect]
     Active Substance: PREDNISONE
     Route: 048
  56. PREDNISONE [Suspect]
     Active Substance: PREDNISONE
     Route: 048
  57. PREDNISONE [Suspect]
     Active Substance: PREDNISONE
     Route: 065
  58. PREDNISONE [Suspect]
     Active Substance: PREDNISONE
     Route: 048
  59. PREDNISONE [Suspect]
     Active Substance: PREDNISONE
     Route: 065
  60. PREDNISONE [Suspect]
     Active Substance: PREDNISONE
     Route: 048
  61. ALENDRONATE SODIUM [Suspect]
     Active Substance: ALENDRONATE SODIUM
     Route: 065
  62. ALENDRONATE SODIUM [Suspect]
     Active Substance: ALENDRONATE SODIUM
     Route: 065
  63. ALENDRONATE SODIUM [Suspect]
     Active Substance: ALENDRONATE SODIUM
     Route: 065
  64. PANTOPRAZOLE SODIUM [Suspect]
     Active Substance: PANTOPRAZOLE SODIUM
     Route: 016
  65. PANTOPRAZOLE SODIUM [Suspect]
     Active Substance: PANTOPRAZOLE SODIUM
     Route: 016
  66. AZATHIOPRINE [Suspect]
     Active Substance: AZATHIOPRINE
     Route: 065
  67. BIOFLAVONOIDS [Suspect]
     Active Substance: BIOFLAVONOIDS
     Route: 065
  68. CALCIUM CARBONATE [Suspect]
     Active Substance: CALCIUM CARBONATE
     Route: 065
  69. CALCIUM CARBONATE [Suspect]
     Active Substance: CALCIUM CARBONATE
     Route: 016
  70. CALCIUM CARBONATE [Suspect]
     Active Substance: CALCIUM CARBONATE
     Route: 058
  71. CALCIUM CARBONATE [Suspect]
     Active Substance: CALCIUM CARBONATE
     Route: 065
  72. CALCIUM CARBONATE [Suspect]
     Active Substance: CALCIUM CARBONATE
     Route: 016
  73. CALCIUM CITRATE [Suspect]
     Active Substance: CALCIUM CITRATE
     Route: 065
  74. CALCIUM GLUBIONATE [Suspect]
     Active Substance: CALCIUM GLUBIONATE
     Route: 065
  75. CELECOXIB [Suspect]
     Active Substance: CELECOXIB
     Route: 065
  76. CELECOXIB [Suspect]
     Active Substance: CELECOXIB
     Route: 058
  77. CELECOXIB [Suspect]
     Active Substance: CELECOXIB
     Route: 065
  78. CELECOXIB [Suspect]
     Active Substance: CELECOXIB
     Route: 048
  79. CERTOLIZUMAB PEGOL [Suspect]
     Active Substance: CERTOLIZUMAB PEGOL
     Route: 058
  80. CHLORHEXIDINE GLUCONATE [Suspect]
     Active Substance: CHLORHEXIDINE GLUCONATE
     Route: 048
  81. CHLORHEXIDINE GLUCONATE [Suspect]
     Active Substance: CHLORHEXIDINE GLUCONATE
     Route: 002
  82. CHLORHEXIDINE GLUCONATE [Suspect]
     Active Substance: CHLORHEXIDINE GLUCONATE
     Route: 065
  83. CIMZIA [Suspect]
     Active Substance: CERTOLIZUMAB PEGOL
     Route: 058
  84. CIMZIA [Suspect]
     Active Substance: CERTOLIZUMAB PEGOL
     Route: 058
  85. CIMZIA [Suspect]
     Active Substance: CERTOLIZUMAB PEGOL
     Route: 058
  86. CLONIDINE HYDROCHLORIDE [Suspect]
     Active Substance: CLONIDINE HYDROCHLORIDE
     Route: 065
  87. CORTISONE (HYDROCORTISONE) [Suspect]
     Active Substance: HYDROCORTISONE
     Route: 049
  88. CORTISONE (HYDROCORTISONE) [Suspect]
     Active Substance: HYDROCORTISONE
     Route: 058
  89. CORTISONE (HYDROCORTISONE) [Suspect]
     Active Substance: HYDROCORTISONE
     Route: 048
  90. DESOXIMETASONE [Suspect]
     Active Substance: DESOXIMETASONE
     Route: 065
  91. DESOXIMETASONE [Suspect]
     Active Substance: DESOXIMETASONE
     Route: 048
  92. DESOXIMETASONE [Suspect]
     Active Substance: DESOXIMETASONE
     Route: 065
  93. DESOXIMETASONE [Suspect]
     Active Substance: DESOXIMETASONE
     Route: 048
  94. DESOXIMETASONE [Suspect]
     Active Substance: DESOXIMETASONE
     Route: 065
  95. DESOXIMETASONE [Suspect]
     Active Substance: DESOXIMETASONE
     Route: 065
  96. DICLOFENAC POTASSIUM [Suspect]
     Active Substance: DICLOFENAC POTASSIUM
     Route: 065
  97. DICLOFENAC POTASSIUM [Suspect]
     Active Substance: DICLOFENAC POTASSIUM
     Route: 065
  98. DILTIAZEM HYDROCHLORIDE [Suspect]
     Active Substance: DILTIAZEM HYDROCHLORIDE
     Route: 040
  99. DIPHENHYDRAMINE HYDROCHLORIDE [Suspect]
     Active Substance: DIPHENHYDRAMINE HYDROCHLORIDE
     Route: 065
  100. DOXYCYCLINE HYCLATE [Suspect]
     Active Substance: DOXYCYCLINE HYCLATE
     Route: 065
  101. SULFISOMIDINE SODIUM [Suspect]
     Active Substance: SULFISOMIDINE SODIUM
     Route: 065
  102. ENTYVIO [Suspect]
     Active Substance: VEDOLIZUMAB
     Route: 065
  103. ERELZI [Suspect]
     Active Substance: ETANERCEPT-SZZS
     Route: 058
  104. ERELZI [Suspect]
     Active Substance: ETANERCEPT-SZZS
     Route: 058
  105. FOLIC ACID [Suspect]
     Active Substance: FOLIC ACID
     Route: 065
  106. FOLIC ACID [Suspect]
     Active Substance: FOLIC ACID
     Route: 065
  107. FOLIC ACID [Suspect]
     Active Substance: FOLIC ACID
     Route: 048
  108. FOLIC ACID [Suspect]
     Active Substance: FOLIC ACID
     Route: 049
  109. FOLIC ACID [Suspect]
     Active Substance: FOLIC ACID
     Route: 048
  110. FOLIC ACID [Suspect]
     Active Substance: FOLIC ACID
     Route: 065
  111. FOLIC ACID [Suspect]
     Active Substance: FOLIC ACID
     Route: 065
  112. FOLIC ACID [Suspect]
     Active Substance: FOLIC ACID
     Route: 048
  113. FOLIC ACID [Suspect]
     Active Substance: FOLIC ACID
     Route: 065
  114. FOLIC ACID [Suspect]
     Active Substance: FOLIC ACID
     Route: 065
  115. FRAMYCETIN SULFATE [Suspect]
     Active Substance: FRAMYCETIN SULFATE
     Route: 065
  116. GOLIMUMAB [Suspect]
     Active Substance: GOLIMUMAB
     Route: 065
  117. GRAMICIDIN [Suspect]
     Active Substance: GRAMICIDIN
     Route: 065
  118. HUMIRA [Suspect]
     Active Substance: ADALIMUMAB
     Route: 058
  119. HUMIRA [Suspect]
     Active Substance: ADALIMUMAB
     Route: 058
  120. HUMIRA [Suspect]
     Active Substance: ADALIMUMAB
     Route: 058
  121. HUMIRA [Suspect]
     Active Substance: ADALIMUMAB
     Route: 058
  122. HYDROXYCHLOROQUINE SULFATE [Suspect]
     Active Substance: HYDROXYCHLOROQUINE SULFATE
     Route: 048
  123. HYDROXYCHLOROQUINE SULFATE [Suspect]
     Active Substance: HYDROXYCHLOROQUINE SULFATE
     Route: 050
  124. HYDROXYCHLOROQUINE SULFATE [Suspect]
     Active Substance: HYDROXYCHLOROQUINE SULFATE
     Route: 048
  125. HYDROXYCHLOROQUINE SULFATE [Suspect]
     Active Substance: HYDROXYCHLOROQUINE SULFATE
     Route: 048
  126. HYDROXYCHLOROQUINE SULFATE [Suspect]
     Active Substance: HYDROXYCHLOROQUINE SULFATE
     Route: 048
  127. HYDROXYCHLOROQUINE SULFATE [Suspect]
     Active Substance: HYDROXYCHLOROQUINE SULFATE
     Route: 065
  128. HYDROXYCHLOROQUINE SULFATE [Suspect]
     Active Substance: HYDROXYCHLOROQUINE SULFATE
     Route: 058
  129. HYDROXYCHLOROQUINE SULFATE [Suspect]
     Active Substance: HYDROXYCHLOROQUINE SULFATE
     Route: 049
  130. HYDROXYCHLOROQUINE SULFATE [Suspect]
     Active Substance: HYDROXYCHLOROQUINE SULFATE
     Route: 065
  131. HYDROXYCHLOROQUINE SULFATE [Suspect]
     Active Substance: HYDROXYCHLOROQUINE SULFATE
     Route: 048
  132. HYDROXYCHLOROQUINE SULFATE [Suspect]
     Active Substance: HYDROXYCHLOROQUINE SULFATE
     Route: 048
  133. HYDROXYCHLOROQUINE SULFATE [Suspect]
     Active Substance: HYDROXYCHLOROQUINE SULFATE
     Route: 048
  134. ISOPROPYL ALCOHOL [Suspect]
     Active Substance: ISOPROPYL ALCOHOL
     Route: 048
  135. LYRICA [Suspect]
     Active Substance: PREGABALIN
     Route: 065
  136. MESALAMINE [Suspect]
     Active Substance: MESALAMINE
     Route: 065
  137. MORPHINE SULFATE [Suspect]
     Active Substance: MORPHINE SULFATE
     Route: 065
  138. MYCOPHENOLATE MOFETIL [Suspect]
     Active Substance: MYCOPHENOLATE MOFETIL
     Route: 065
  139. NAPROXEN SODIUM [Suspect]
     Active Substance: NAPROXEN SODIUM
     Route: 065
  140. NAPROXEN SODIUM [Suspect]
     Active Substance: NAPROXEN SODIUM
     Route: 065
  141. NITROFURAZONE [Suspect]
     Active Substance: NITROFURAZONE
     Route: 048
  142. NITROFURAZONE [Suspect]
     Active Substance: NITROFURAZONE
     Route: 048
  143. ORENCIA [Suspect]
     Active Substance: ABATACEPT
     Route: 065
  144. ORENCIA [Suspect]
     Active Substance: ABATACEPT
     Route: 040
  145. ORENCIA [Suspect]
     Active Substance: ABATACEPT
     Route: 065
  146. ORENCIA [Suspect]
     Active Substance: ABATACEPT
     Route: 040
  147. ORENCIA [Suspect]
     Active Substance: ABATACEPT
     Route: 058
  148. ORENCIA [Suspect]
     Active Substance: ABATACEPT
     Route: 065
  149. ORENCIA [Suspect]
     Active Substance: ABATACEPT
     Route: 040
  150. ORENCIA [Suspect]
     Active Substance: ABATACEPT
     Route: 058
  151. ORENCIA [Suspect]
     Active Substance: ABATACEPT
     Route: 058
  152. ORENCIA [Suspect]
     Active Substance: ABATACEPT
     Route: 058
  153. ORENCIA [Suspect]
     Active Substance: ABATACEPT
     Route: 065
  154. ORENCIA [Suspect]
     Active Substance: ABATACEPT
     Route: 065
  155. OXYCODONE HYDROCHLORIDE [Suspect]
     Active Substance: OXYCODONE HYDROCHLORIDE
     Route: 065
  156. OXYCODONE HYDROCHLORIDE [Suspect]
     Active Substance: OXYCODONE HYDROCHLORIDE
     Route: 065
  157. OXYCODONE TEREPHTHALATE [Suspect]
     Active Substance: OXYCODONE TEREPHTHALATE
     Route: 065
  158. PARA-AMINOSALICYLIC ACID [Suspect]
     Active Substance: AMINOSALICYLIC ACID
     Route: 065
  159. PHTHALYLSULFATHIAZOLE [Suspect]
     Active Substance: PHTHALYLSULFATHIAZOLE
     Route: 048
  160. PHTHALYLSULFATHIAZOLE [Suspect]
     Active Substance: PHTHALYLSULFATHIAZOLE
     Route: 048
  161. PHTHALYLSULFATHIAZOLE [Suspect]
     Active Substance: PHTHALYLSULFATHIAZOLE
     Route: 050
  162. PHTHALYLSULFATHIAZOLE [Suspect]
     Active Substance: PHTHALYLSULFATHIAZOLE
     Route: 016
  163. PHTHALYLSULFATHIAZOLE [Suspect]
     Active Substance: PHTHALYLSULFATHIAZOLE
     Route: 048
  164. PHTHALYLSULFATHIAZOLE [Suspect]
     Active Substance: PHTHALYLSULFATHIAZOLE
     Route: 048
  165. PHTHALYLSULFATHIAZOLE [Suspect]
     Active Substance: PHTHALYLSULFATHIAZOLE
     Route: 048
  166. PHTHALYLSULFATHIAZOLE [Suspect]
     Active Substance: PHTHALYLSULFATHIAZOLE
     Route: 058
  167. PSEUDOEPHEDRINE HYDROCHLORIDE [Suspect]
     Active Substance: PSEUDOEPHEDRINE HYDROCHLORIDE
     Route: 065
  168. QUETIAPINE FUMARATE [Suspect]
     Active Substance: QUETIAPINE FUMARATE
     Route: 065
  169. CETIRIZINE HYDROCHLORIDE\PSEUDOEPHEDRINE HYDROCHLORIDE [Suspect]
     Active Substance: CETIRIZINE HYDROCHLORIDE\PSEUDOEPHEDRINE HYDROCHLORIDE
     Route: 048
  170. CETIRIZINE HYDROCHLORIDE\PSEUDOEPHEDRINE HYDROCHLORIDE [Suspect]
     Active Substance: CETIRIZINE HYDROCHLORIDE\PSEUDOEPHEDRINE HYDROCHLORIDE
     Route: 048
  171. CETIRIZINE HYDROCHLORIDE\PSEUDOEPHEDRINE HYDROCHLORIDE [Suspect]
     Active Substance: CETIRIZINE HYDROCHLORIDE\PSEUDOEPHEDRINE HYDROCHLORIDE
     Route: 065
  172. CETIRIZINE HYDROCHLORIDE\PSEUDOEPHEDRINE HYDROCHLORIDE [Suspect]
     Active Substance: CETIRIZINE HYDROCHLORIDE\PSEUDOEPHEDRINE HYDROCHLORIDE
     Route: 065
  173. SALICYLIC ACID [Suspect]
     Active Substance: SALICYLIC ACID
     Route: 065
  174. THYMOL [Suspect]
     Active Substance: THYMOL
     Route: 048
  175. THYMOL [Suspect]
     Active Substance: THYMOL
     Route: 048
  176. TOCILIZUMAB [Suspect]
     Active Substance: TOCILIZUMAB
     Dosage: 2912 MILLIGRAM, QWK (ONE EVERY ONE WEEK)
     Route: 040
  177. TOCILIZUMAB [Suspect]
     Active Substance: TOCILIZUMAB
     Route: 058
  178. TOCILIZUMAB [Suspect]
     Active Substance: TOCILIZUMAB
     Route: 016
  179. TOCILIZUMAB [Suspect]
     Active Substance: TOCILIZUMAB
     Route: 040
  180. TOCILIZUMAB [Suspect]
     Active Substance: TOCILIZUMAB
     Dosage: 752 MILLIGRAM, QWK (ONE EVERY ONE WEEK)
     Route: 065
  181. TOCILIZUMAB [Suspect]
     Active Substance: TOCILIZUMAB
     Route: 058
  182. TOCILIZUMAB [Suspect]
     Active Substance: TOCILIZUMAB
     Route: 040
  183. TOCILIZUMAB [Suspect]
     Active Substance: TOCILIZUMAB
     Route: 058
  184. TOCILIZUMAB [Suspect]
     Active Substance: TOCILIZUMAB
     Route: 040
  185. TOCILIZUMAB [Suspect]
     Active Substance: TOCILIZUMAB
     Route: 058
  186. TOCILIZUMAB [Suspect]
     Active Substance: TOCILIZUMAB
     Route: 016
  187. TOCILIZUMAB [Suspect]
     Active Substance: TOCILIZUMAB
     Route: 048
  188. TOCILIZUMAB [Suspect]
     Active Substance: TOCILIZUMAB
     Route: 040
  189. TRAMADOL HYDROCHLORIDE [Suspect]
     Active Substance: TRAMADOL HYDROCHLORIDE
     Route: 065
  190. TRIAMCINOLONE ACETONIDE [Suspect]
     Active Substance: TRIAMCINOLONE ACETONIDE
     Route: 035
  191. TRICLOSAN [Suspect]
     Active Substance: TRICLOSAN
     Route: 065
  192. SULFAMETHOXAZOLE\TRIMETHOPRIM [Suspect]
     Active Substance: SULFAMETHOXAZOLE\TRIMETHOPRIM
     Route: 067
  193. SULFAMETHOXAZOLE\TRIMETHOPRIM [Suspect]
     Active Substance: SULFAMETHOXAZOLE\TRIMETHOPRIM
     Route: 067
  194. TYROTHRICIN [Suspect]
     Active Substance: TYROTHRICIN
     Route: 048
  195. TYROTHRICIN [Suspect]
     Active Substance: TYROTHRICIN
     Route: 048
  196. USTEKINUMAB [Suspect]
     Active Substance: USTEKINUMAB
     Route: 040
  197. DICLOFENAC DIETHYLAMINE [Suspect]
     Active Substance: DICLOFENAC DIETHYLAMINE
     Route: 065
  198. DICLOFENAC DIETHYLAMINE [Suspect]
     Active Substance: DICLOFENAC DIETHYLAMINE
     Route: 065
  199. DICLOFENAC DIETHYLAMINE [Suspect]
     Active Substance: DICLOFENAC DIETHYLAMINE
     Route: 065

REACTIONS (18)
  - Hip arthroplasty [Fatal]
  - Hypercholesterolaemia [Fatal]
  - Hypersensitivity [Fatal]
  - Hypertension [Fatal]
  - Hypoaesthesia [Fatal]
  - Impaired healing [Fatal]
  - Infection [Fatal]
  - Infusion related reaction [Fatal]
  - Injury [Fatal]
  - Irritable bowel syndrome [Fatal]
  - Joint dislocation [Fatal]
  - Joint range of motion decreased [Fatal]
  - Joint stiffness [Fatal]
  - Knee arthroplasty [Fatal]
  - Off label use [Unknown]
  - Off label use [Unknown]
  - Off label use [Unknown]
  - Intentional product use issue [Unknown]
